FAERS Safety Report 8024538 (Version 3)
Quarter: 2013Q1

REPORT INFORMATION
  Report Type: Spontaneous
  Country: US (occurrence: None)
  Receive Date: 20110622
  Receipt Date: 20130222
  Transmission Date: 20140127
  Serious: Yes (Other)
  Sender: FDA-Public Use
  Company Number: ACO_25185_2011

PATIENT
  Age: 48 Year
  Sex: Female

DRUGS (12)
  1. AMPYRA [Suspect]
     Indication: GAIT DISTURBANCE
     Dosage: 10 MG, Q 12 HRS
     Dates: start: 201004
  2. BACLOFEN [Concomitant]
  3. OXYBUTYNIN (OXYBUTYNIN) [Concomitant]
  4. COPAXONE [Concomitant]
  5. CHANTIX [Concomitant]
  6. ZOLOFT [Concomitant]
  7. FLONASE [Concomitant]
  8. LIPITOR [Concomitant]
  9. BRONCHODILATOR [Concomitant]
  10. NEURONTIN [Concomitant]
  11. SOLU-MEDROL [Concomitant]
  12. QVAR [Concomitant]

REACTIONS (9)
  - Road traffic accident [None]
  - Muscle spasms [None]
  - Memory impairment [None]
  - Multiple sclerosis relapse [None]
  - Disorientation [None]
  - Therapeutic response unexpected [None]
  - Mouth injury [None]
  - Convulsion [None]
  - Mouth haemorrhage [None]
